FAERS Safety Report 7747364-9 (Version None)
Quarter: 2011Q3

REPORT INFORMATION
  Report Type: 
  Country: None (occurrence: None)
  Receive Date: 20110913
  Receipt Date: 20110831
  Transmission Date: 20111222
  Serious: Yes (Hospitalization)
  Sender: FDA-Public Use
  Company Number: US-GLAXOSMITHKLINE-A0897706A

PATIENT
  Age: 51 Year
  Sex: Female
  Weight: 106.8 kg

DRUGS (10)
  1. ZESTRIL [Concomitant]
  2. ASPIRIN [Concomitant]
  3. AVANDIA [Suspect]
     Indication: TYPE 2 DIABETES MELLITUS
     Dosage: 8MG PER DAY
     Route: 048
     Dates: start: 20000416, end: 20070713
  4. LASIX [Concomitant]
  5. TOPROL-XL [Concomitant]
  6. LANOXIN [Concomitant]
  7. GLUCOTROL XL [Concomitant]
  8. NITROGLYCERIN [Concomitant]
  9. PULMICORT [Concomitant]
  10. ALDACTONE [Concomitant]

REACTIONS (2)
  - SUPRAVENTRICULAR TACHYCARDIA [None]
  - CORONARY ARTERY DISEASE [None]
